FAERS Safety Report 4695512-X (Version None)
Quarter: 2005Q2

REPORT INFORMATION
  Report Type: 
  Country: None (occurrence: None)
  Receive Date: 20050608
  Receipt Date: 20050315
  Transmission Date: 20051028
  Serious: Yes (Other)
  Sender: FDA-Public Use
  Company Number: A03200500707

PATIENT
  Age: 63 Year
  Sex: Male
  Weight: 51.7101 kg

DRUGS (6)
  1. ELOXATIN [Suspect]
     Indication: COLON CANCER METASTATIC
     Dosage: 137 MG Q2W - INTRAVENOUS NOS
     Route: 042
     Dates: start: 20050314, end: 20050314
  2. ELOXATIN [Suspect]
     Indication: COLON CANCER METASTATIC
     Dosage: 137 MG Q2W - INTRAVENOUS NOS
     Route: 042
     Dates: start: 20050314, end: 20050314
  3. FLUOROURACIL [Concomitant]
  4. LEUCOVORIN [Concomitant]
  5. DEXAMETHASONE [Concomitant]
  6. GRANISETRON [Concomitant]

REACTIONS (10)
  - CONFUSIONAL STATE [None]
  - EYELID OEDEMA [None]
  - HYPOTENSION [None]
  - NASAL CONGESTION [None]
  - OEDEMA PERIPHERAL [None]
  - RASH [None]
  - SWELLING FACE [None]
  - SWOLLEN TONGUE [None]
  - THROAT TIGHTNESS [None]
  - WHEEZING [None]
